FAERS Safety Report 12679620 (Version 2)
Quarter: 2016Q4

REPORT INFORMATION
  Report Type: Spontaneous
  Country: US (occurrence: US)
  Receive Date: 20160824
  Receipt Date: 20161012
  Transmission Date: 20170207
  Serious: No
  Sender: FDA-Public Use
  Company Number: US-PFIZER INC-2016398037

PATIENT
  Age: 16 Month
  Sex: Male
  Weight: 8.16 kg

DRUGS (1)
  1. INFANTS ADVIL CONCENTRATED DROPS [Suspect]
     Active Substance: IBUPROFEN
     Indication: PYREXIA
     Dosage: 1.875 ML, ONCE A DAY
     Route: 048
     Dates: start: 20160820

REACTIONS (2)
  - Vomiting [Recovered/Resolved]
  - Drug ineffective [Unknown]

NARRATIVE: CASE EVENT DATE: 201608
